FAERS Safety Report 9633725 (Version 1)
Quarter: 2013Q4

REPORT INFORMATION
  Report Type: Spontaneous
  Country: US (occurrence: US)
  Receive Date: 20131021
  Receipt Date: 20131021
  Transmission Date: 20140711
  Serious: No
  Sender: FDA-Public Use
  Company Number: US-PFIZER INC-2013299017

PATIENT
  Age: 44 Year
  Sex: Male
  Weight: 77.1 kg

DRUGS (5)
  1. LYRICA [Suspect]
     Indication: NEUROPATHY PERIPHERAL
     Dosage: 200 MG, 2X/DAY
     Dates: start: 201309, end: 20131013
  2. LYRICA [Suspect]
     Indication: INTERVERTEBRAL DISC PROTRUSION
  3. LYRICA [Suspect]
     Indication: NERVE INJURY
  4. ZOLOFT [Concomitant]
     Indication: DEPRESSION
     Dosage: 100 MG, DAILY
  5. ATIVAN [Concomitant]
     Indication: PANIC ATTACK
     Dosage: UNK, AS NEEDED

REACTIONS (1)
  - Pain [Unknown]
